FAERS Safety Report 4790865-6 (Version None)
Quarter: 2005Q3

REPORT INFORMATION
  Report Type: 
  Country: None (occurrence: None)
  Receive Date: 20050914
  Receipt Date: 20040823
  Transmission Date: 20060218
  Serious: Yes (Hospitalization, Other)
  Sender: FDA-Public Use
  Company Number: 163-20785-04080460

PATIENT
  Age: 64 Year
  Sex: Male

DRUGS (8)
  1. THALOMID [Suspect]
     Indication: MULTIPLE MYELOMA
     Dosage: 100 MG, DAILY, ORAL; 200 MG, DAILY, ORAL
     Route: 048
     Dates: start: 20040705, end: 20040101
  2. THALOMID [Suspect]
     Indication: MULTIPLE MYELOMA
     Dosage: 100 MG, DAILY, ORAL; 200 MG, DAILY, ORAL
     Route: 048
     Dates: start: 20040801
  3. DEXAMETHASONE [Suspect]
     Dosage: 40 MG, DAILY, 3 DAYS ON 7 DAYS OFF
     Dates: start: 20040701
  4. COUMADIN [Concomitant]
  5. VASOTEC [Concomitant]
  6. TRANDATE [Concomitant]
  7. CARDIZEM [Concomitant]
  8. NORVASC [Concomitant]

REACTIONS (10)
  - ABDOMINAL DISTENSION [None]
  - ATRIAL FIBRILLATION [None]
  - BRADYCARDIA [None]
  - CONDITION AGGRAVATED [None]
  - CONSTIPATION [None]
  - FATIGUE [None]
  - HICCUPS [None]
  - NERVOUSNESS [None]
  - OEDEMA PERIPHERAL [None]
  - SOMNOLENCE [None]
